FAERS Safety Report 22392878 (Version 2)
Quarter: 2023Q2

REPORT INFORMATION
  Report Type: Spontaneous
  Country: US (occurrence: US)
  Receive Date: 20230601
  Receipt Date: 20230603
  Transmission Date: 20230722
  Serious: Yes (Hospitalization, Other)
  Sender: FDA-Public Use
  Company Number: US-SUN PHARMACEUTICAL INDUSTRIES LTD-2023R1-392341

PATIENT
  Age: 32 Year
  Sex: Female

DRUGS (1)
  1. TOPIRAMATE [Suspect]
     Active Substance: TOPIRAMATE
     Indication: Product used for unknown indication
     Dosage: UNK (36 G)
     Route: 048

REACTIONS (5)
  - Intentional overdose [Unknown]
  - Acidosis hyperchloraemic [Recovering/Resolving]
  - Depressed level of consciousness [Recovering/Resolving]
  - Hyporesponsive to stimuli [Recovering/Resolving]
  - Myoclonus [Recovered/Resolved]
